FAERS Safety Report 15389176 (Version 2)
Quarter: 2019Q3

REPORT INFORMATION
  Report Type: Spontaneous
  Country: US (occurrence: US)
  Receive Date: 20180917
  Receipt Date: 20190902
  Transmission Date: 20191004
  Serious: No
  Sender: FDA-Public Use
  Company Number: US-BIOGEN-2018BI00623289

PATIENT
  Age: 52 Year
  Sex: Female

DRUGS (3)
  1. AUGMENTIN [Concomitant]
     Active Substance: AMOXICILLIN\CLAVULANATE POTASSIUM
     Route: 065
  2. TECFIDERA [Suspect]
     Active Substance: DIMETHYL FUMARATE
     Indication: MULTIPLE SCLEROSIS
     Dosage: TOOK SAMPLES FOR 6 WEEKS
     Route: 050
     Dates: start: 20180803
  3. TECFIDERA [Suspect]
     Active Substance: DIMETHYL FUMARATE
     Dosage: TOOK FOR ABOUT TWO WEEKS
     Route: 050
     Dates: start: 201809

REACTIONS (4)
  - Feeling hot [Recovered/Resolved]
  - Type IV hypersensitivity reaction [Unknown]
  - Nausea [Recovered/Resolved]
  - Prescribed underdose [Recovered/Resolved]

NARRATIVE: CASE EVENT DATE: 20180803
